FAERS Safety Report 12197805 (Version 1)
Quarter: 2016Q1

REPORT INFORMATION
  Report Type: Spontaneous
  Country: US (occurrence: None)
  Receive Date: 20160321
  Receipt Date: 20160321
  Transmission Date: 20160526
  Serious: Yes (Life-Threatening)
  Sender: FDA-Public Use
  Company Number: None

PATIENT
  Age: 76 Year
  Sex: Female
  Weight: 76.2 kg

DRUGS (48)
  1. ENALAPRIL [Suspect]
     Active Substance: ENALAPRIL
     Indication: HYPERTENSION
     Dosage: 1 PILL A DAY, EVERY DAY, ONCE A DAY, BY MOUTH
     Dates: end: 20160216
  2. BREO ENALAPRIL [Concomitant]
  3. THERAFLE [Concomitant]
  4. VERAPAMIL [Concomitant]
     Active Substance: VERAPAMIL HYDROCHLORIDE
  5. QUAFENESIN WITH CODEINE [Concomitant]
  6. AZITHROMYCIN ANHYDROUS. [Concomitant]
     Active Substance: AZITHROMYCIN ANHYDROUS
  7. NAPROXEN. [Concomitant]
     Active Substance: NAPROXEN
  8. NIGHT QUILL [Concomitant]
  9. PROAIR HFA [Concomitant]
     Active Substance: ALBUTEROL SULFATE
  10. AZITHROMYCIN ANHYDROUS. [Concomitant]
     Active Substance: AZITHROMYCIN ANHYDROUS
  11. Z PAC [Concomitant]
  12. FLUTICASON [Concomitant]
     Active Substance: FLUTICASONE\FLUTICASONE PROPIONATE
  13. BREO ELLIPTA [Concomitant]
     Active Substance: FLUTICASONE FUROATE\VILANTEROL TRIFENATATE
  14. LEVOCETIRIZIN [Concomitant]
     Active Substance: LEVOCETIRIZINE DIHYDROCHLORIDE
  15. DELSYN COUGH [Concomitant]
  16. ENALAPRIL [Concomitant]
     Active Substance: ENALAPRIL
  17. FENOFIBRATE. [Concomitant]
     Active Substance: FENOFIBRATE
  18. COLECOXIL [Concomitant]
  19. NIGHT QUILL [Concomitant]
  20. MUCINEX [Concomitant]
     Active Substance: GUAIFENESIN
  21. Z PAC [Concomitant]
  22. NABUTEROL [Concomitant]
  23. TRAMADOL. [Concomitant]
     Active Substance: TRAMADOL
  24. PREDNISOLONE. [Concomitant]
     Active Substance: PREDNISOLONE
  25. VITAMIN C [Concomitant]
     Active Substance: ASCORBIC ACID
  26. BENZONATE [Concomitant]
     Active Substance: BENZONATATE
  27. DELSYN [Concomitant]
  28. ALKA SELTZER [Concomitant]
     Active Substance: ANHYDROUS CITRIC ACID\ASPIRIN\SODIUM BICARBONATE
  29. VIT. D2 [Concomitant]
  30. TRIAMCINOLONE [Concomitant]
     Active Substance: TRIAMCINOLONE
  31. PROMETHE [Concomitant]
  32. LENACHLORIZINE [Concomitant]
  33. THERAFLY [Concomitant]
  34. TUKOL [Concomitant]
  35. VERAPAMIL [Concomitant]
     Active Substance: VERAPAMIL HYDROCHLORIDE
  36. FLUTICASONE [Concomitant]
     Active Substance: FLUTICASONE\FLUTICASONE PROPIONATE
  37. CELECOXID [Concomitant]
  38. PROAIR HFA [Concomitant]
     Active Substance: ALBUTEROL SULFATE
  39. MUCINEX DM [Concomitant]
     Active Substance: DEXTROMETHORPHAN HYDROBROMIDE\GUAIFENESIN
  40. FENOFIBRATE. [Concomitant]
     Active Substance: FENOFIBRATE
  41. HYDROCODONE [Concomitant]
     Active Substance: HYDROCODONE
  42. GUAIFENESIN WITH COD [Concomitant]
  43. TRAMADOL. [Concomitant]
     Active Substance: TRAMADOL
  44. PROMETHOGEN [Concomitant]
  45. CIPRAFOR [Concomitant]
  46. METHYLPREDNISOLONE. [Concomitant]
     Active Substance: METHYLPREDNISOLONE
  47. AZITHROMYCIN ANHYDROUS. [Concomitant]
     Active Substance: AZITHROMYCIN ANHYDROUS
  48. ZZ MELTS [Concomitant]

REACTIONS (8)
  - Headache [None]
  - Chest pain [None]
  - Cough [None]
  - Insomnia [None]
  - Asthenia [None]
  - Tremor [None]
  - Eating disorder [None]
  - Crying [None]

NARRATIVE: CASE EVENT DATE: 201510
